FAERS Safety Report 8926249 (Version 1)
Quarter: 2012Q4

REPORT INFORMATION
  Report Type: 
  Country: CA (occurrence: CA)
  Receive Date: 20121126
  Receipt Date: 20121126
  Transmission Date: 20130627
  Serious: Yes (Hospitalization, Other)
  Sender: FDA-Public Use
  Company Number: CA-ASTRAZENECA-2012SE86230

PATIENT
  Age: 27 Year
  Sex: Male
  Weight: 111.6 kg

DRUGS (1)
  1. SEROQUEL [Suspect]
     Route: 048

REACTIONS (2)
  - Pain [Not Recovered/Not Resolved]
  - Priapism [Not Recovered/Not Resolved]
